FAERS Safety Report 8733388 (Version 2)
Quarter: 2012Q4

REPORT INFORMATION
  Report Type: 
  Country: US (occurrence: US)
  Receive Date: 20120821
  Receipt Date: 20120904
  Transmission Date: 20130627
  Serious: No
  Sender: FDA-Public Use
  Company Number: US-PFIZER INC-2012202793

PATIENT
  Age: 70 Year
  Sex: Female
  Weight: 77.1 kg

DRUGS (4)
  1. CELEBREX [Suspect]
     Indication: OSTEOARTHRITIS
     Dosage: 100 mg, 2x/day
  2. TYLENOL [Suspect]
     Indication: OSTEOARTHRITIS
     Dosage: 650 mg, 2x/day
     Dates: start: 2012
  3. TYLENOL [Suspect]
     Indication: HEADACHE
  4. METOPROLOL [Concomitant]
     Indication: BLOOD PRESSURE INCREASED
     Dosage: 25 mg, daily

REACTIONS (3)
  - Drug ineffective [Unknown]
  - Osteoarthritis [Unknown]
  - Osteoarthritis [Recovering/Resolving]
